FAERS Safety Report 10592904 (Version 1)
Quarter: 2014Q4

REPORT INFORMATION
  Report Type: Spontaneous
  Country: US (occurrence: None)
  Receive Date: 20141118
  Receipt Date: 20141118
  Transmission Date: 20150529
  Serious: Yes (Hospitalization, Disabling, Other)
  Sender: FDA-Public Use
  Company Number: None

PATIENT
  Age: 63 Year
  Sex: Female
  Weight: 81.65 kg

DRUGS (2)
  1. BACLOFEN 10 MG TABLETS [Suspect]
     Active Substance: BACLOFEN
     Indication: SPINAL CORD INJURY
     Dosage: 3 PILLS
     Route: 048
     Dates: start: 20140617, end: 20141006
  2. BACLOFEN 10 MG TABLETS [Suspect]
     Active Substance: BACLOFEN
     Indication: MUSCLE SPASTICITY
     Dosage: 3 PILLS
     Route: 048
     Dates: start: 20140617, end: 20141006

REACTIONS (4)
  - Neurosis [None]
  - Frontotemporal dementia [None]
  - Aggression [None]
  - Psychotic disorder [None]

NARRATIVE: CASE EVENT DATE: 20141117
